FAERS Safety Report 10704754 (Version 1)
Quarter: 2015Q1

REPORT INFORMATION
  Report Type: Spontaneous
  Country: US (occurrence: None)
  Receive Date: 20150109
  Receipt Date: 20150109
  Transmission Date: 20150721
  Serious: No
  Sender: FDA-Public Use
  Company Number: None

PATIENT
  Age: 66 Year
  Sex: Male
  Weight: 80.9 kg

DRUGS (1)
  1. BACITRACIN\POLYMYXIN B SULFATE [Suspect]
     Active Substance: BACITRACIN\POLYMYXIN B SULFATE
     Indication: PAIN
     Route: 061

REACTIONS (6)
  - Application site pain [None]
  - Skin tightness [None]
  - Condition aggravated [None]
  - Penis disorder [None]
  - Rash [None]
  - Dermatitis [None]

NARRATIVE: CASE EVENT DATE: 20130701
